FAERS Safety Report 15438299 (Version 1)
Quarter: 2018Q3

REPORT INFORMATION
  Report Type: Spontaneous
  Country: CA (occurrence: CA)
  Receive Date: 20180928
  Receipt Date: 20180928
  Transmission Date: 20181010
  Serious: Yes (Death)
  Sender: FDA-Public Use
  Company Number: CA-CELLTRION INC.-2018CA022711

PATIENT

DRUGS (4)
  1. INFLECTRA [Suspect]
     Active Substance: INFLIXIMAB-DYYB
     Indication: CROHN^S DISEASE
     Dosage: 500 MG, 0,2,6, THEN EVERY 8 WEEKS
     Route: 042
     Dates: start: 20171219, end: 20180724
  2. PREDNISONE. [Concomitant]
     Active Substance: PREDNISONE
  3. PENTASA [Concomitant]
     Active Substance: MESALAMINE
  4. IMODIUM [Concomitant]
     Active Substance: LOPERAMIDE HYDROCHLORIDE

REACTIONS (2)
  - Coronary artery disease [Fatal]
  - Myocardial infarction [Fatal]
